FAERS Safety Report 6703002-5 (Version None)
Quarter: 2010Q2

REPORT INFORMATION
  Report Type: 
  Country: None (occurrence: None)
  Receive Date: 20100429
  Receipt Date: 20100429
  Transmission Date: 20101027
  Serious: Yes (Other)
  Sender: FDA-Public Use
  Company Number: None

PATIENT
  Age: 10 Year
  Sex: Female
  Weight: 32.3 kg

DRUGS (5)
  1. LIDOCAINE 2% [Suspect]
     Indication: INFILTRATION ANAESTHESIA
     Dosage: ONE DOSE
  2. FLUDROCORTISONE [Concomitant]
  3. HYDROCORTISONE [Concomitant]
  4. CITRA-3 [Concomitant]
  5. MAGONATE [Concomitant]

REACTIONS (2)
  - DRUG EFFECT DELAYED [None]
  - INJECTION SITE PAIN [None]
